FAERS Safety Report 8857604 (Version 1)
Quarter: 2012Q4

REPORT INFORMATION
  Report Type: 
  Country: US (occurrence: US)
  Receive Date: 20121024
  Receipt Date: 20121024
  Transmission Date: 20130627
  Serious: No
  Sender: FDA-Public Use
  Company Number: US-ASTRAZENECA-2012SE78585

PATIENT
  Age: 54 Year
  Sex: Male

DRUGS (15)
  1. CRESTOR [Suspect]
     Route: 048
     Dates: start: 201209
  2. OMEPRAZOLE [Suspect]
     Route: 048
  3. XANAX [Concomitant]
  4. PLAVIX [Concomitant]
  5. VASOTEC [Concomitant]
  6. BAYER ASPIRIN [Concomitant]
  7. VITAMIN B-1 [Concomitant]
  8. LOVAZA [Concomitant]
  9. NICOTINE PATCH [Concomitant]
  10. LIDODERM  PATCH [Concomitant]
  11. FOLIC ACID [Concomitant]
  12. BYSTOLIC [Concomitant]
  13. NIASPAN [Concomitant]
  14. DILTIAZEM [Concomitant]
     Indication: CHEST PAIN
  15. TYLENOL [Concomitant]
     Indication: PAIN

REACTIONS (2)
  - Blood cholesterol increased [Unknown]
  - Chest pain [Unknown]
